FAERS Safety Report 22673932 (Version 3)
Quarter: 2023Q4

REPORT INFORMATION
  Report Type: Spontaneous
  Country: US (occurrence: US)
  Receive Date: 20230705
  Receipt Date: 20231009
  Transmission Date: 20240109
  Serious: Yes (Hospitalization, Other)
  Sender: FDA-Public Use
  Company Number: US-JAZZ PHARMACEUTICALS-2023-US-013958

PATIENT
  Age: 7 Year
  Sex: Male

DRUGS (12)
  1. RYLAZE [Suspect]
     Active Substance: ASPARAGINASE ERWINIA CHRYSANTHEMI (RECOMBINANT)-RYWN
     Indication: Acute lymphocytic leukaemia recurrent
     Dosage: DOSES ALTERNATED BETWEEN 20 MG AND 40 MG
     Route: 030
     Dates: start: 20221112
  2. RYLAZE [Suspect]
     Active Substance: ASPARAGINASE ERWINIA CHRYSANTHEMI (RECOMBINANT)-RYWN
     Dosage: DOSES ALTERNATED BETWEEN 20 MG AND 40 MG
     Route: 030
     Dates: start: 20230625
  3. RYLAZE [Suspect]
     Active Substance: ASPARAGINASE ERWINIA CHRYSANTHEMI (RECOMBINANT)-RYWN
     Dosage: DOSES ALTERNATED BETWEEN 20 MG AND 40 MG
     Route: 030
     Dates: start: 20230627
  4. RYLAZE [Suspect]
     Active Substance: ASPARAGINASE ERWINIA CHRYSANTHEMI (RECOMBINANT)-RYWN
     Dosage: 25 MILLIGRAM/SQ. METER 1 MILLILITER ADMINISTERED IN RIGHT THIGH
     Dates: start: 20230625
  5. RYLAZE [Suspect]
     Active Substance: ASPARAGINASE ERWINIA CHRYSANTHEMI (RECOMBINANT)-RYWN
     Dosage: 25 MILLIGRAM/SQ. METER 1 MILLILITER ADMINISTERED IN LEFT THIGH
     Dates: start: 20230627
  6. CYCLOPHOSPHAMIDE [Concomitant]
     Active Substance: CYCLOPHOSPHAMIDE
     Indication: Product used for unknown indication
     Dosage: 1000 MILLIGRAM/SQ. METER
  7. CYTARABINE [Concomitant]
     Active Substance: CYTARABINE
     Indication: Product used for unknown indication
     Dosage: 75 MILLIGRAM/SQ. METER
  8. THIOGUANINE [Concomitant]
     Active Substance: THIOGUANINE
     Indication: Product used for unknown indication
  9. METHOTREXATE [Concomitant]
     Active Substance: METHOTREXATE
     Indication: Product used for unknown indication
     Dosage: 12 MILLIGRAM
  10. EMEND (FOSAPREPITANT DIMEGLUMINE) [Concomitant]
     Active Substance: FOSAPREPITANT DIMEGLUMINE
     Indication: Product used for unknown indication
  11. ALOXI [Concomitant]
     Active Substance: PALONOSETRON HYDROCHLORIDE
     Indication: Product used for unknown indication
  12. SEPTRA [Concomitant]
     Active Substance: SULFAMETHOXAZOLE\TRIMETHOPRIM
     Indication: Product used for unknown indication

REACTIONS (4)
  - Neutropenia [Recovered/Resolved]
  - Injection site cellulitis [Recovered/Resolved]
  - Bacteraemia [Recovered/Resolved]
  - Product quality issue [Unknown]

NARRATIVE: CASE EVENT DATE: 20230627
